FAERS Safety Report 22302686 (Version 1)
Quarter: 2023Q2

REPORT INFORMATION
  Report Type: Report from Study
  Country: CH (occurrence: CH)
  Receive Date: 20230510
  Receipt Date: 20230510
  Transmission Date: 20230722
  Serious: Yes (Other)
  Sender: FDA-Public Use
  Company Number: CH-ASTELLAS-2023US014133

PATIENT
  Sex: Male

DRUGS (2)
  1. ENFORTUMAB VEDOTIN [Suspect]
     Active Substance: ENFORTUMAB VEDOTIN
     Indication: Transitional cell carcinoma
     Dosage: 0.6 MG/KG, UNKNOWN FREQ.
     Route: 042
  2. ENFORTUMAB VEDOTIN [Suspect]
     Active Substance: ENFORTUMAB VEDOTIN
     Dosage: 0.6 MG/KG, UNKNOWN FREQ.
     Route: 042

REACTIONS (3)
  - Neutropenia [Recovered/Resolved]
  - Underdose [Unknown]
  - Product use issue [Unknown]
